FAERS Safety Report 5138724-3 (Version None)
Quarter: 2006Q4

REPORT INFORMATION
  Report Type: 
  Country: None (occurrence: None)
  Receive Date: 20061030
  Receipt Date: 20061024
  Transmission Date: 20070319
  Serious: Yes (Other)
  Sender: FDA-Public Use
  Company Number: CH-MERCK-0610CHE00019

PATIENT
  Sex: Male

DRUGS (2)
  1. MODURETIC 5-50 [Suspect]
     Indication: HYPERTENSION
     Route: 048
     Dates: start: 20061023, end: 20061024
  2. CHLORTHALIDONE [Concomitant]
     Indication: HYPERTENSION
     Route: 001
     Dates: start: 20060101, end: 20061001

REACTIONS (1)
  - HYPERTENSIVE CRISIS [None]
